FAERS Safety Report 5813711-8 (Version None)
Quarter: 2008Q3

REPORT INFORMATION
  Report Type: 
  Country: None (occurrence: None)
  Receive Date: 20080717
  Receipt Date: 20080707
  Transmission Date: 20090109
  Serious: Yes (Death)
  Sender: FDA-Public Use
  Company Number: BR-ROCHE-574744

PATIENT
  Sex: Male
  Weight: 74 kg

DRUGS (2)
  1. XELODA [Suspect]
     Route: 048
     Dates: start: 20080601, end: 20080619
  2. CHEMOTHERAPY DRUG NOS [Concomitant]
     Dosage: DRUG NAME REPORTED AS UNSPECIFIED DRUGS (CHEMOTHERAPY)
     Dates: end: 20080619

REACTIONS (1)
  - DEATH [None]
